FAERS Safety Report 7086218-0 (Version None)
Quarter: 2010Q4

REPORT INFORMATION
  Report Type: 
  Country: None (occurrence: None)
  Receive Date: 20101105
  Receipt Date: 20101011
  Transmission Date: 20110411
  Serious: Yes (Hospitalization)
  Sender: FDA-Public Use
  Company Number: US-GENZYME-FLUD-1000358

PATIENT
  Sex: Female

DRUGS (22)
  1. FLUDARA [Suspect]
     Indication: CHRONIC LYMPHOCYTIC LEUKAEMIA
     Dosage: UNK
     Route: 065
  2. FLUDARA [Suspect]
  3. FLUDARA [Suspect]
     Indication: BONE MARROW CONDITIONING REGIMEN
  4. CAMPATH [Suspect]
     Indication: CHRONIC LYMPHOCYTIC LEUKAEMIA
     Dosage: UNK
     Route: 065
     Dates: start: 20100513, end: 20100517
  5. CAMPATH [Suspect]
     Dosage: UNK
     Route: 065
     Dates: start: 20100614, end: 20100618
  6. CAMPATH [Suspect]
     Indication: BONE MARROW CONDITIONING REGIMEN
     Dosage: UNK
     Route: 065
     Dates: start: 20100719, end: 20100723
  7. CYTOXAN [Suspect]
     Indication: CHRONIC LYMPHOCYTIC LEUKAEMIA
     Dosage: UNK
     Route: 065
  8. CYTOXAN [Suspect]
  9. CYTOXAN [Suspect]
     Indication: BONE MARROW CONDITIONING REGIMEN
  10. RITUXAN [Suspect]
     Indication: CHRONIC LYMPHOCYTIC LEUKAEMIA
     Dosage: UNK
     Route: 065
  11. RITUXAN [Suspect]
  12. RITUXAN [Suspect]
     Indication: BONE MARROW CONDITIONING REGIMEN
  13. MEPRON [Concomitant]
     Dosage: UNK
     Route: 065
  14. ACYCLOVIR SODIUM [Concomitant]
     Dosage: UNK
     Route: 065
  15. PSEUDOEPHEDRINE HYDROCHLORIDE [Concomitant]
     Dosage: UNK
     Route: 065
  16. BENADRYL [Concomitant]
     Dosage: UNK
     Route: 065
  17. ACETAMINOPHEN [Concomitant]
     Dosage: UNK
     Route: 065
  18. VITAMIN A [Concomitant]
     Dosage: UNK
     Route: 065
  19. FOLIC ACID [Concomitant]
     Dosage: UNK
     Route: 065
  20. SINGULAIR [Concomitant]
     Dosage: UNK
     Route: 065
  21. ZOLOFT [Concomitant]
     Dosage: UNK
     Route: 065
  22. AMOXICILLIN AND CLAVULANATE POTASSIUM [Concomitant]
     Dosage: UNK
     Route: 065

REACTIONS (3)
  - NEUTROPENIA [None]
  - SINUSITIS [None]
  - THROMBOTIC THROMBOCYTOPENIC PURPURA [None]
